FAERS Safety Report 4948153-0 (Version None)
Quarter: 2006Q1

REPORT INFORMATION
  Report Type: 
  Country: None (occurrence: None)
  Receive Date: 20060320
  Receipt Date: 20051123
  Transmission Date: 20060701
  Serious: Yes (Death, Other)
  Sender: FDA-Public Use
  Company Number: US-BRISTOL-MYERS SQUIBB COMPANY-13193271

PATIENT
  Age: 62 Year
  Sex: Male

DRUGS (11)
  1. DIDANOSINE [Suspect]
     Indication: HIV INFECTION
  2. STAVUDINE [Suspect]
     Indication: HIV INFECTION
  3. ENFUVIRTIDE [Suspect]
     Indication: HIV INFECTION
     Route: 058
  4. LOPINAVIR + RITONAVIR [Suspect]
     Indication: HIV INFECTION
     Dosage: DOSAGE FORM-CAPSULES: RITONAVIR 400 MG + LOPINAVIR 100 MG
  5. DELAVIRDINE [Suspect]
     Indication: HIV INFECTION
  6. LAMIVUDINE [Suspect]
     Indication: HIV INFECTION
  7. FLUCONAZOLE [Concomitant]
  8. VERAPAMIL HCL [Concomitant]
  9. FUROSEMIDE [Concomitant]
  10. DRONABINOL [Concomitant]
  11. MULTI-VITAMIN [Concomitant]

REACTIONS (6)
  - ATRIAL FIBRILLATION [None]
  - COMA [None]
  - CYANOSIS [None]
  - DEATH [None]
  - DYSPNOEA [None]
  - ELECTROCARDIOGRAM QT PROLONGED [None]
